FAERS Safety Report 25818762 (Version 1)
Quarter: 2025Q3

REPORT INFORMATION
  Report Type: Report from Study
  Country: IN (occurrence: IN)
  Receive Date: 20250918
  Receipt Date: 20250918
  Transmission Date: 20251021
  Serious: Yes (Other)
  Sender: DAIICHI
  Company Number: IN-AstraZeneca-CH-00948226A

PATIENT
  Age: 77 Year
  Sex: Female
  Weight: 55 kg

DRUGS (1)
  1. ENHERTU [Suspect]
     Active Substance: FAM-TRASTUZUMAB DERUXTECAN-NXKI
     Indication: Targeted cancer therapy
     Route: 042
     Dates: start: 202507, end: 2025

REACTIONS (4)
  - Cancer pain [Recovering/Resolving]
  - Lymphoedema [Recovering/Resolving]
  - Neuralgia [Recovering/Resolving]
  - Drug ineffective [Recovering/Resolving]
